FAERS Safety Report 6032150-0 (Version None)
Quarter: 2009Q1

REPORT INFORMATION
  Report Type: 
  Country: None (occurrence: None)
  Receive Date: 20090107
  Receipt Date: 20081216
  Transmission Date: 20090719
  Serious: Yes (Hospitalization)
  Sender: FDA-Public Use
  Company Number: 200813451BNE

PATIENT
  Sex: 0

DRUGS (2)
  1. FLUDARA [Suspect]
     Indication: LEUKAEMIA
  2. MYELOTARG (UNCODEABLE UNCLASSIFIABLE) [Concomitant]

REACTIONS (1)
  - DEMYELINATING POLYNEUROPATHY [None]
